FAERS Safety Report 19510911 (Version 1)
Quarter: 2021Q3

REPORT INFORMATION
  Report Type: Spontaneous
  Country: DE (occurrence: DE)
  Receive Date: 20210709
  Receipt Date: 20210709
  Transmission Date: 20211014
  Serious: Yes (Hospitalization)
  Sender: FDA-Public Use
  Company Number: DE-SA-2021SA216364

PATIENT
  Age: 70 Year
  Sex: Male
  Weight: 95 kg

DRUGS (9)
  1. INSULIN DETEMIR [Suspect]
     Active Substance: INSULIN DETEMIR
     Dosage: 18 IU, QD
     Route: 058
  2. APIDRA [Suspect]
     Active Substance: INSULIN GLULISINE
     Dosage: 13?7?8?0, TID
     Route: 058
  3. EMPAGLIFLOZIN [Concomitant]
     Active Substance: EMPAGLIFLOZIN
     Dosage: 10 MG, QD
     Route: 048
  4. SIMVASTATIN. [Concomitant]
     Active Substance: SIMVASTATIN
     Dosage: 10 MG, 3X
     Route: 048
  5. DALTEPARIN [Concomitant]
     Active Substance: DALTEPARIN
     Dosage: 100 IU/ML, 0?0?0.5?0
     Route: 058
  6. PANTOPRAZOL [PANTOPRAZOLE] [Concomitant]
     Active Substance: PANTOPRAZOLE
     Dosage: 40 MG, QD
     Route: 048
  7. METFORMIN HYDROCHLORIDE. [Suspect]
     Active Substance: METFORMIN HYDROCHLORIDE
     Dosage: 1000 MG, UNK
     Route: 048
  8. METAMIZOL [METAMIZOLE SODIUM] [Concomitant]
     Dosage: 500 MG, QD
     Route: 048
  9. LISINOPRIL. [Concomitant]
     Active Substance: LISINOPRIL
     Dosage: 10 MG, QD
     Route: 048

REACTIONS (5)
  - Decubitus ulcer [Unknown]
  - Product prescribing error [Unknown]
  - Peripheral swelling [Unknown]
  - Erythema [Unknown]
  - Pyrexia [Unknown]
